FAERS Safety Report 4840913-X (Version None)
Quarter: 2005Q4

REPORT INFORMATION
  Report Type: 
  Country: None (occurrence: None)
  Receive Date: 20051130
  Receipt Date: 20051117
  Transmission Date: 20060501
  Serious: Yes (Other)
  Sender: FDA-Public Use
  Company Number: PHBS2005BR17147

PATIENT
  Age: 5 Year
  Sex: Male
  Weight: 13 kg

DRUGS (3)
  1. TEGRETOL [Suspect]
     Indication: FEBRILE CONVULSION
     Dosage: 3 ML MORNING AND NIGHT
     Dates: start: 20051001, end: 20050101
  2. TEGRETOL [Suspect]
     Dosage: 3 ML, BID
     Dates: start: 20051101, end: 20051101
  3. TEGRETOL [Suspect]
     Dosage: 3 ML, QD
     Dates: start: 20051101

REACTIONS (6)
  - BALANCE DISORDER [None]
  - BODY TEMPERATURE INCREASED [None]
  - CONVULSION [None]
  - DRUG INEFFECTIVE [None]
  - FACIAL PALSY [None]
  - TREMOR [None]
